FAERS Safety Report 8974288 (Version 1)
Quarter: 2012Q4

REPORT INFORMATION
  Report Type: Spontaneous
  Country: NL (occurrence: None)
  Receive Date: 20121214
  Receipt Date: 20121214
  Transmission Date: 20130627
  Serious: Yes (Hospitalization)
  Sender: FDA-Public Use
  Company Number: DSA_61330_2012

PATIENT
  Age: 56 Year
  Sex: Male
  Weight: 98 kg

DRUGS (5)
  1. ENALAPRIL MALEATE [Suspect]
     Dosage: (10 mg  QD Oral)
(10/01/2012  to 11/12/2012)
     Route: 048
     Dates: start: 20121001, end: 20121112
  2. SIMVASTATIN (SIMVASTATIN) [Suspect]
     Dosage: (40  mg  QD  Oral)
(??/??/2007  to  11/12/2012
     Route: 048
     Dates: start: 2007, end: 20121112
  3. METFORMIN [Concomitant]
  4. TOLBUTAMIDE [Concomitant]
  5. HYDROCHLOROTHIAZIDE [Concomitant]

REACTIONS (2)
  - Drug interaction [None]
  - Pancreatitis acute [None]
